FAERS Safety Report 6481436-4 (Version None)
Quarter: 2009Q4

REPORT INFORMATION
  Report Type: 
  Country: None (occurrence: None)
  Receive Date: 20091208
  Receipt Date: 20090316
  Transmission Date: 20100525
  Serious: No
  Sender: FDA-Public Use
  Company Number: US-AMGEN-KDL338740

PATIENT
  Sex: Female
  Weight: 90.8 kg

DRUGS (8)
  1. ENBREL [Suspect]
     Indication: PSORIASIS
     Route: 058
     Dates: start: 20080123
  2. PREMARIN [Concomitant]
     Dates: start: 19990101
  3. INDAPAMIDE [Concomitant]
     Dates: start: 19940101
  4. BABY ASPIRIN [Concomitant]
     Dates: start: 20080101
  5. UNSPECIFIED MEDICATION [Concomitant]
     Dates: start: 20080101
  6. THYROID TAB [Concomitant]
     Dates: start: 20040101
  7. IMIPRAMINE [Concomitant]
     Dates: start: 19840101
  8. POTASSIUM [Concomitant]
     Dates: start: 20090116

REACTIONS (5)
  - BLOOD POTASSIUM INCREASED [None]
  - INSOMNIA [None]
  - PRURITUS [None]
  - RASH PUSTULAR [None]
  - SKIN EXFOLIATION [None]
